FAERS Safety Report 16764282 (Version 1)
Quarter: 2019Q3

REPORT INFORMATION
  Report Type: Spontaneous
  Country: GB (occurrence: GB)
  Receive Date: 20190902
  Receipt Date: 20190902
  Transmission Date: 20191005
  Serious: Yes (Other)
  Sender: FDA-Public Use
  Company Number: GB-TEVA-2019-GB-1099949

PATIENT
  Age: 59 Year
  Sex: Male
  Weight: 88 kg

DRUGS (14)
  1. METRONIDAZOLE. [Suspect]
     Active Substance: METRONIDAZOLE
     Indication: GINGIVITIS
     Route: 048
     Dates: start: 20190629, end: 20190703
  2. LEVOGLUTAMIDE [Concomitant]
     Active Substance: GLUTAMINE
  3. LOPERAMIDE HYDROCHLORIDE. [Concomitant]
     Active Substance: LOPERAMIDE HYDROCHLORIDE
  4. TADALAFIL. [Concomitant]
     Active Substance: TADALAFIL
  5. METHYLPHENIDATE HYDROCHLORIDE. [Concomitant]
     Active Substance: METHYLPHENIDATE HYDROCHLORIDE
  6. COSOPT [Concomitant]
     Active Substance: DORZOLAMIDE HYDROCHLORIDE\TIMOLOL MALEATE
  7. HYOSCINE BUTYLBROMIDE [Concomitant]
     Active Substance: BUTYLSCOPOLAMINE BROMIDE
  8. SILDENAFIL. [Concomitant]
     Active Substance: SILDENAFIL
  9. EICOSAPENTAENOIC ACID [Concomitant]
     Active Substance: ICOSAPENT
  10. SOLIFENACIN SUCCINATE. [Concomitant]
     Active Substance: SOLIFENACIN SUCCINATE
  11. DEXAMETHASONE. [Concomitant]
     Active Substance: DEXAMETHASONE
  12. LATANOPROST. [Concomitant]
     Active Substance: LATANOPROST
  13. FLUTICASONE PROPIONATE. [Concomitant]
     Active Substance: FLUTICASONE PROPIONATE
  14. CELLULOSE [Concomitant]
     Active Substance: POWDERED CELLULOSE

REACTIONS (1)
  - Vision blurred [Not Recovered/Not Resolved]
